FAERS Safety Report 6951614-6 (Version None)
Quarter: 2010Q3

REPORT INFORMATION
  Report Type: 
  Country: None (occurrence: None)
  Receive Date: 20100828
  Receipt Date: 20100330
  Transmission Date: 20110219
  Serious: No
  Sender: FDA-Public Use
  Company Number: US-ABBOTT-10P-163-0636389-00

PATIENT
  Sex: Female
  Weight: 71.732 kg

DRUGS (13)
  1. NIASPAN [Suspect]
     Indication: BLOOD CHOLESTEROL INCREASED
     Dosage: AT BEDTIME
     Route: 048
     Dates: start: 20100201
  2. NIASPAN [Suspect]
     Dosage: AT BEDTIME
     Route: 048
     Dates: start: 20100101, end: 20100201
  3. AMITRIPTYLINE HCL [Concomitant]
     Indication: NEUROPATHY PERIPHERAL
     Dosage: 2-25MG TAB IN AM; 3-75MG TAB AT NIGHT
     Route: 048
  4. GENERIC HYDROCODONE [Concomitant]
     Indication: PRODUCT USED FOR UNKNOWN INDICATION
     Dosage: 1-2 TAB Q4H AS NEEDED IN AM AND AT NIGHT
     Route: 048
  5. SPIRONOLACTONE [Concomitant]
     Indication: HYPERTENSION
     Route: 048
  6. SPIRONOLACTONE [Concomitant]
     Indication: BLOOD POTASSIUM
  7. ASPIRIN [Concomitant]
     Indication: PRODUCT USED FOR UNKNOWN INDICATION
     Route: 048
  8. LYSENE [Concomitant]
     Indication: PRODUCT USED FOR UNKNOWN INDICATION
     Route: 048
  9. CENTRUM CARDIO [Concomitant]
     Indication: PRODUCT USED FOR UNKNOWN INDICATION
     Route: 048
  10. CALCIUM [Concomitant]
     Indication: PRODUCT USED FOR UNKNOWN INDICATION
     Route: 048
  11. VITAMIN B [Concomitant]
     Indication: PRODUCT USED FOR UNKNOWN INDICATION
     Route: 048
  12. VITAMIN B-12 [Concomitant]
     Indication: PRODUCT USED FOR UNKNOWN INDICATION
     Route: 048
  13. VITAMIN B6 [Concomitant]
     Indication: PRODUCT USED FOR UNKNOWN INDICATION
     Route: 048

REACTIONS (3)
  - DRUG EFFECT DECREASED [None]
  - MIDDLE INSOMNIA [None]
  - PRURITUS [None]
